FAERS Safety Report 11055184 (Version 1)
Quarter: 2015Q2

REPORT INFORMATION
  Report Type: Spontaneous
  Country: US (occurrence: None)
  Receive Date: 20150421
  Receipt Date: 20150421
  Transmission Date: 20150821
  Serious: Yes (Hospitalization)
  Sender: FDA-Public Use
  Company Number: None

PATIENT
  Age: 68 Year
  Sex: Male
  Weight: 95.1 kg

DRUGS (2)
  1. MIDAZOLAM [Suspect]
     Active Substance: MIDAZOLAM\MIDAZOLAM HYDROCHLORIDE
     Indication: SEDATION
     Route: 042
     Dates: start: 20150304, end: 20150304
  2. MEPERIDINE [Suspect]
     Active Substance: MEPERIDINE
     Indication: SEDATION
     Route: 042
     Dates: start: 20150304, end: 20150304

REACTIONS (5)
  - Oxygen saturation decreased [None]
  - Unresponsive to stimuli [None]
  - Respiratory depression [None]
  - Hypoventilation [None]
  - Sedation [None]

NARRATIVE: CASE EVENT DATE: 20150304
